FAERS Safety Report 5828870-0 (Version None)
Quarter: 2008Q3

REPORT INFORMATION
  Report Type: 
  Country: None (occurrence: None)
  Receive Date: 20080731
  Receipt Date: 20080723
  Transmission Date: 20090109
  Serious: Yes (Hospitalization, Other)
  Sender: FDA-Public Use
  Company Number: BG-BAYER-200717890GPV

PATIENT
  Age: 45 Year
  Sex: Male
  Weight: 65 kg

DRUGS (11)
  1. MOXIFLOXACIN HCL [Suspect]
     Indication: PERITONEAL INFECTION
     Dosage: TOTAL DAILY DOSE: 400 MG  UNIT DOSE: 400 MG
     Route: 042
     Dates: start: 20070419, end: 20070423
  2. NEXIUM [Concomitant]
     Indication: GASTRIC ULCER
     Route: 042
     Dates: start: 20070419, end: 20070430
  3. HEPARIN [Concomitant]
     Indication: PULMONARY EMBOLISM
     Route: 042
     Dates: start: 20070422, end: 20070423
  4. NIVALIN [Concomitant]
     Indication: GASTROINTESTINAL MOTILITY DISORDER
     Route: 042
     Dates: start: 20070419, end: 20070501
  5. TRANSMETIL [Concomitant]
     Indication: PROPHYLAXIS
     Route: 042
     Dates: start: 20070419, end: 20070424
  6. MIDAZOLAM HCL [Concomitant]
     Indication: SEDATION
     Route: 042
     Dates: start: 20070422, end: 20070428
  7. HSA [Concomitant]
     Indication: HYPOPROTEINAEMIA
     Route: 042
     Dates: start: 20070420, end: 20070420
  8. OLICLINOMEL [Concomitant]
     Indication: PARENTERAL NUTRITION
     Route: 042
     Dates: start: 20070420, end: 20070509
  9. CERNEVIT-12 [Concomitant]
     Indication: PARENTERAL NUTRITION
     Route: 042
     Dates: start: 20070420, end: 20070502
  10. POTASSIUM CHLORIDE [Concomitant]
     Indication: HYPOKALAEMIA
     Dosage: UNIT DOSE: 15 %
     Route: 042
     Dates: start: 20070420
  11. CORMAGNESIN 200 [Concomitant]
     Indication: ELECTROLYTE IMBALANCE
     Route: 042
     Dates: start: 20070420

REACTIONS (5)
  - ACUTE RESPIRATORY DISTRESS SYNDROME [None]
  - ANAEMIA [None]
  - LEUKOCYTOSIS [None]
  - NEUTROPHIL COUNT INCREASED [None]
  - WOUND INFECTION [None]
